FAERS Safety Report 9716246 (Version 1)
Quarter: 2013Q4

REPORT INFORMATION
  Report Type: Spontaneous
  Country: US (occurrence: None)
  Receive Date: 20131126
  Receipt Date: 20131126
  Transmission Date: 20140711
  Serious: Yes (Hospitalization)
  Sender: FDA-Public Use
  Company Number: None

PATIENT
  Age: 75 Year
  Sex: Male
  Weight: 101.8 kg

DRUGS (1)
  1. ASPIRIN [Suspect]
     Indication: STENT PLACEMENT
     Route: 048
     Dates: start: 20081023, end: 20131018

REACTIONS (5)
  - Tachycardia [None]
  - Myocardial infarction [None]
  - Gastrointestinal haemorrhage [None]
  - Anaemia [None]
  - Ulcer [None]
